FAERS Safety Report 6927791-X (Version None)
Quarter: 2010Q3

REPORT INFORMATION
  Report Type: 
  Country: None (occurrence: None)
  Receive Date: 20100816
  Receipt Date: 20100816
  Transmission Date: 20110219
  Serious: Yes (Life-Threatening)
  Sender: FDA-Public Use
  Company Number: None

PATIENT
  Sex: Male
  Weight: 90.7 kg

DRUGS (17)
  1. TAXOTERE [Suspect]
     Indication: PROSTATE CANCER METASTATIC
     Dosage: 150MG ONCE IV DRIP  ONE INFUSION
     Route: 041
  2. ZOMETA [Concomitant]
  3. CYANOCOBALAMIN [Concomitant]
  4. ATIVAN [Concomitant]
  5. VITAMIN AND MINERAL PRENATAL SUPPLEMENT W/ FOLIC ACID CAP [Concomitant]
  6. DOCUSATE [Concomitant]
  7. SENNA [Concomitant]
  8. BENADRYL [Concomitant]
  9. METOPROLOL SUCCINATE [Concomitant]
  10. PROMETHAZINE [Concomitant]
  11. OXYCONTIN [Concomitant]
  12. EFFEXOR [Concomitant]
  13. LORTAB [Concomitant]
  14. CASODEX [Concomitant]
  15. MOBIC [Concomitant]
  16. PREVACID [Concomitant]
  17. ZOFRAN [Concomitant]

REACTIONS (7)
  - ARTHRALGIA [None]
  - CHEST DISCOMFORT [None]
  - DIZZINESS [None]
  - DYSPNOEA [None]
  - ERYTHEMA [None]
  - INFUSION RELATED REACTION [None]
  - MUSCULOSKELETAL PAIN [None]
